FAERS Safety Report 10511400 (Version 2)
Quarter: 2014Q4

REPORT INFORMATION
  Report Type: Spontaneous
  Country: US (occurrence: US)
  Receive Date: 20141010
  Receipt Date: 20141107
  Transmission Date: 20150528
  Serious: No
  Sender: FDA-Public Use
  Company Number: US-ASTRAZENECA-2014SE75920

PATIENT
  Age: 73 Year
  Sex: Female
  Weight: 58.9 kg

DRUGS (5)
  1. VITAMIN C [Concomitant]
     Active Substance: ASCORBIC ACID
  2. PREMARIN [Concomitant]
     Active Substance: ESTROGENS, CONJUGATED
  3. VITAMIN D [Concomitant]
     Active Substance: CHOLECALCIFEROL
  4. CRANACTIN [Concomitant]
  5. NEXIUM 24HR [Suspect]
     Active Substance: ESOMEPRAZOLE MAGNESIUM
     Indication: GASTROOESOPHAGEAL REFLUX DISEASE
     Dosage: 40 MG, 1X/DAY (2 ONCE A DAY, 40MG)
     Route: 048
     Dates: start: 201410, end: 201410

REACTIONS (2)
  - Headache [Recovered/Resolved]
  - Intentional product misuse [Recovered/Resolved]

NARRATIVE: CASE EVENT DATE: 201410
